FAERS Safety Report 4646233-0 (Version None)
Quarter: 2005Q2

REPORT INFORMATION
  Report Type: 
  Country: None (occurrence: None)
  Receive Date: 20050427
  Receipt Date: 20050228
  Transmission Date: 20051028
  Serious: Yes (Death)
  Sender: FDA-Public Use
  Company Number: ES-ROCHE-396909

PATIENT
  Age: 71 Year
  Sex: Male

DRUGS (17)
  1. MYCOPHENOLATE MOFETIL [Suspect]
     Route: 065
     Dates: start: 20041214, end: 20050118
  2. MYCOPHENOLATE MOFETIL [Suspect]
     Route: 065
     Dates: start: 20050119, end: 20050123
  3. MYCOPHENOLATE MOFETIL [Suspect]
     Route: 065
     Dates: start: 20050124, end: 20050126
  4. MYCOPHENOLATE MOFETIL [Suspect]
     Route: 065
     Dates: start: 20050127, end: 20050210
  5. TACROLIMUS [Suspect]
     Dosage: DOSE ADJUSTED TO REACH PREDEFINED TARGET LEVELS.
     Route: 065
     Dates: start: 20041215, end: 20050218
  6. METHYLPREDNISOLONE [Suspect]
     Dosage: DOSE TAPERED ACCORDING TO LOCAL PROTOCOL
     Route: 065
     Dates: start: 20041214, end: 20041216
  7. PREDNISONE [Suspect]
     Dosage: DOSE TAPERED ACCORDING TO LOCAL PROTOCOL.
     Route: 065
     Dates: start: 20041217, end: 20050218
  8. CEFOTAXIME [Concomitant]
     Dates: start: 20041214, end: 20041217
  9. SEPTRA [Concomitant]
     Dates: start: 20041216, end: 20050218
  10. GANCICLOVIR [Concomitant]
     Dates: start: 20041214, end: 20041230
  11. EPOETIN BETA [Concomitant]
     Dates: start: 20041215, end: 20050109
  12. ATENOLOL [Concomitant]
     Dates: start: 20041218, end: 20050218
  13. ISOSORBIDE MONONITRATE [Concomitant]
     Dates: start: 20041218, end: 20050218
  14. AMLODIPINE [Concomitant]
     Dates: start: 20050107, end: 20050117
  15. DARBEPOETIN ALFA [Concomitant]
     Dates: start: 20050110, end: 20050218
  16. DOXAZOSIN MESYLATE [Concomitant]
     Dates: start: 20050117, end: 20050218
  17. FUROSEMIDE [Concomitant]
     Indication: DIURETIC THERAPY
     Dates: start: 20050124, end: 20050218

REACTIONS (3)
  - CARDIAC FAILURE [None]
  - HAEMOPTYSIS [None]
  - RENAL ARTERY STENOSIS [None]
